FAERS Safety Report 14712187 (Version 1)
Quarter: 2018Q2

REPORT INFORMATION
  Report Type: Spontaneous
  Country: US (occurrence: US)
  Receive Date: 20180404
  Receipt Date: 20180404
  Transmission Date: 20180711
  Serious: No
  Sender: FDA-Public Use
  Company Number: US-SA-2017SA126880

PATIENT
  Age: 53 Year
  Sex: Female
  Weight: 54.43 kg

DRUGS (2)
  1. FLUTICASONE. [Concomitant]
     Active Substance: FLUTICASONE
     Indication: SEASONAL ALLERGY
     Dosage: 2 SPRAYS/EACH NOSE
     Route: 045
     Dates: start: 2015
  2. ALLEGRA-D 24 HOUR [Suspect]
     Active Substance: FEXOFENADINE HYDROCHLORIDE\PSEUDOEPHEDRINE HYDROCHLORIDE
     Indication: HYPERSENSITIVITY
     Dosage: ONE TABLET DAILY
     Route: 048
     Dates: start: 20170628, end: 20170707

REACTIONS (1)
  - Sleep disorder [Recovered/Resolved]

NARRATIVE: CASE EVENT DATE: 20170629
